FAERS Safety Report 16040102 (Version 1)
Quarter: 2019Q1

REPORT INFORMATION
  Report Type: Report from Study
  Country: DE (occurrence: DE)
  Receive Date: 20190306
  Receipt Date: 20190306
  Transmission Date: 20190418
  Serious: Yes (Other)
  Sender: FDA-Public Use
  Company Number: DE-ACCORD-096162

PATIENT
  Age: 57 Year
  Sex: Male

DRUGS (12)
  1. NOVAMINSULFON [Concomitant]
     Active Substance: METAMIZOLE
  2. CALCIUM PHOSPHATE [Concomitant]
     Active Substance: CALCIUM PHOSPHATE
  3. ATROPINE. [Concomitant]
     Active Substance: ATROPINE
     Dates: start: 20150822, end: 20151201
  4. ALIZAPRIDE [Concomitant]
     Active Substance: ALIZAPRIDE
     Dates: start: 20150922
  5. LEUCOVORIN. [Suspect]
     Active Substance: LEUCOVORIN
     Indication: COLORECTAL CANCER METASTATIC
     Route: 041
     Dates: start: 20150922, end: 20150922
  6. SIMVASTATIN. [Concomitant]
     Active Substance: SIMVASTATIN
  7. IRINOTECAN [Suspect]
     Active Substance: IRINOTECAN
     Indication: COLORECTAL CANCER METASTATIC
     Dosage: LAST ADMINISTRATION DATE 22-DEP-2018, PEGYLATED LIPOSOMAL IRINOTECAN
     Route: 041
     Dates: start: 20150922, end: 20150922
  8. GRANISETRON [Concomitant]
     Active Substance: GRANISETRON
     Dates: start: 20150922
  9. CLOPIDOGREL [Concomitant]
     Active Substance: CLOPIDOGREL BISULFATE
  10. FLUOROURACIL. [Suspect]
     Active Substance: FLUOROURACIL
     Indication: COLORECTAL CANCER METASTATIC
     Dosage: LAST: 22-SEP-2015?ALSO RECEIVED 4900 MG AND 830 MG  CYCLICAL FROM 20-OCT-2015 TO 20-OCT-2015
     Route: 041
     Dates: start: 20150922, end: 20150922
  11. AFLIBERCEPT [Suspect]
     Active Substance: AFLIBERCEPT
     Indication: COLORECTAL CANCER METASTATIC
     Route: 041
     Dates: start: 20150922, end: 20150922
  12. AMLODIPINE [Concomitant]
     Active Substance: AMLODIPINE BESYLATE

REACTIONS (5)
  - Thrombocytopenia [Recovered/Resolved]
  - Inappropriate schedule of product administration [Unknown]
  - Dyspepsia [Recovered/Resolved]
  - Overdose [Unknown]
  - Fatigue [Recovered/Resolved]

NARRATIVE: CASE EVENT DATE: 20151020
